FAERS Safety Report 9393622 (Version 1)
Quarter: 2013Q3

REPORT INFORMATION
  Report Type: Spontaneous
  Country: ES (occurrence: ES)
  Receive Date: 20130710
  Receipt Date: 20130710
  Transmission Date: 20140515
  Serious: Yes (Other)
  Sender: FDA-Public Use
  Company Number: ES-ELI_LILLY_AND_COMPANY-ES201307000260

PATIENT
  Age: 70 Year
  Sex: Female

DRUGS (10)
  1. FORSTEO [Suspect]
     Indication: OSTEOPOROSIS
     Dosage: 20 UG, QD
     Route: 058
     Dates: start: 201301
  2. MORPHINE [Concomitant]
     Indication: PAIN
     Dosage: 32 MG, UNK
  3. MORPHINE [Concomitant]
     Dosage: 52.5 MG, UNK
  4. AZILECT [Concomitant]
     Indication: PARKINSON^S DISEASE
     Dosage: UNK
  5. MIRAPEXIN [Concomitant]
     Indication: PARKINSON^S DISEASE
     Dosage: UNK
  6. SINEMET [Concomitant]
     Dosage: UNK
  7. ORFIDAL [Concomitant]
     Indication: INSOMNIA
     Dosage: UNK
  8. NOCTAMID [Concomitant]
     Dosage: UNK
  9. HIDROFEROL [Concomitant]
     Dosage: UNK
  10. IRON [Concomitant]
     Dosage: UNK

REACTIONS (3)
  - Hip fracture [Unknown]
  - Rib fracture [Unknown]
  - Pain [Unknown]
